FAERS Safety Report 8289320-0 (Version None)
Quarter: 2012Q2

REPORT INFORMATION
  Report Type: 
  Country: None (occurrence: None)
  Receive Date: 20120417
  Receipt Date: 20120413
  Transmission Date: 20120825
  Serious: Yes (Hospitalization, Other)
  Sender: FDA-Public Use
  Company Number: PHHY2012TR007216

PATIENT
  Sex: Male
  Weight: 17 kg

DRUGS (3)
  1. LANSOR [Concomitant]
     Dosage: 30 MG, UNK
  2. KEPPRA [Concomitant]
     Dosage: 500 MG, UNK
  3. EXJADE [Suspect]
     Indication: APLASTIC ANAEMIA
     Dosage: 500 MG
     Route: 048

REACTIONS (4)
  - DYSPNOEA [None]
  - HAEMORRHAGE INTRACRANIAL [None]
  - SPINAL CORD COMPRESSION [None]
  - DYSPHAGIA [None]
